FAERS Safety Report 4489612-7 (Version None)
Quarter: 2004Q4

REPORT INFORMATION
  Report Type: 
  Country: None (occurrence: None)
  Receive Date: 20041101
  Receipt Date: 20041021
  Transmission Date: 20050328
  Serious: Yes (Hospitalization, Disabling)
  Sender: FDA-Public Use
  Company Number: PHHO2004US15027

PATIENT
  Age: 61 Year
  Sex: Male

DRUGS (4)
  1. CYCLOSPORINE [Suspect]
     Indication: RENAL TRANSPLANT
     Dosage: 150 MG, BID
     Route: 048
     Dates: start: 20040618
  2. CYCLOSPORINE [Suspect]
     Dosage: LOWERED DOSE
     Route: 048
  3. PREDNISONE [Concomitant]
     Indication: RENAL TRANSPLANT
     Dosage: NOT REPORTED
     Route: 048
  4. PREDNISONE [Concomitant]
     Dosage: INCREASED DOSE
     Route: 048

REACTIONS (13)
  - ASTHENIA [None]
  - BLOOD CREATININE INCREASED [None]
  - COMMUNICATION DISORDER [None]
  - DEPRESSION [None]
  - DIALYSIS [None]
  - DIFFICULTY IN WALKING [None]
  - GAIT DISTURBANCE [None]
  - IMPAIRED GASTRIC EMPTYING [None]
  - INCONTINENCE [None]
  - NEPHROPATHY TOXIC [None]
  - THERAPEUTIC AGENT TOXICITY [None]
  - TREATMENT NONCOMPLIANCE [None]
  - URINARY TRACT INFECTION [None]
